FAERS Safety Report 23298960 (Version 1)
Quarter: 2023Q4

REPORT INFORMATION
  Report Type: Spontaneous
  Country: GB (occurrence: GB)
  Receive Date: 20231215
  Receipt Date: 20231215
  Transmission Date: 20240110
  Serious: Yes (Other)
  Sender: FDA-Public Use
  Company Number: None

PATIENT
  Age: 85 Year
  Sex: Female

DRUGS (9)
  1. CLOPIDOGREL [Suspect]
     Active Substance: CLOPIDOGREL BISULFATE
     Indication: Product used for unknown indication
  2. DALTEPARIN [Suspect]
     Active Substance: DALTEPARIN
     Indication: Product used for unknown indication
  3. CALCIUM ACETATE [Concomitant]
     Active Substance: CALCIUM ACETATE
  4. SODIUM BICARBONATE [Concomitant]
     Active Substance: SODIUM BICARBONATE
  5. DOXAZOSIN [Concomitant]
     Active Substance: DOXAZOSIN MESYLATE
  6. QUININE SULFATE [Concomitant]
     Active Substance: QUININE SULFATE
  7. LEVETIRACETAM [Concomitant]
     Active Substance: LEVETIRACETAM
  8. AMLODIPINE [Concomitant]
     Active Substance: AMLODIPINE BESYLATE
  9. FUROSEMIDE [Concomitant]
     Active Substance: FUROSEMIDE
     Dosage: IN THE MORNING AND ONE AT MIDDAY 21 TABLETS

REACTIONS (1)
  - Thrombocytopenia [Unknown]
